FAERS Safety Report 6768733-X (Version None)
Quarter: 2010Q2

REPORT INFORMATION
  Report Type: 
  Country: None (occurrence: None)
  Receive Date: 20100614
  Receipt Date: 20100604
  Transmission Date: 20101027
  Serious: Yes (Death, Other)
  Sender: FDA-Public Use
  Company Number: PHHY2010JP36312

PATIENT
  Sex: Female

DRUGS (10)
  1. CGS 20267 T30748+TAB [Suspect]
     Indication: BREAST CANCER
     Dosage: 2.5 MG
     Route: 048
     Dates: start: 20070730
  2. NOLVADEX [Concomitant]
     Dosage: UNK
     Route: 048
     Dates: start: 20060920, end: 20070702
  3. TAXOL [Concomitant]
     Indication: BREAST CANCER
     Dosage: 80 MG
     Dates: start: 20080331
  4. OXYCONTIN [Concomitant]
     Dosage: 10 MG
     Route: 048
     Dates: start: 20080219
  5. OXYCONTIN [Concomitant]
     Dosage: 20 MG
     Route: 048
     Dates: end: 20090105
  6. LOXONIN [Concomitant]
     Dosage: 240 MG
     Route: 048
     Dates: start: 20080219
  7. LOXONIN [Concomitant]
     Dosage: 180 MG
     Route: 048
     Dates: end: 20090121
  8. CYTOTEC [Concomitant]
     Dosage: 800 MG
     Route: 048
     Dates: start: 20080219
  9. CYTOTEC [Concomitant]
     Dosage: 600 MG
     Route: 048
     Dates: end: 20090121
  10. NOVAMIN [Concomitant]
     Dosage: 15 MG
     Route: 048
     Dates: start: 20080307, end: 20090121

REACTIONS (5)
  - DEATH [None]
  - LEUKOPENIA [None]
  - METASTASES TO BONE [None]
  - METASTASES TO LYMPH NODES [None]
  - WHITE BLOOD CELL COUNT DECREASED [None]
